FAERS Safety Report 16234503 (Version 2)
Quarter: 2019Q2

REPORT INFORMATION
  Report Type: Spontaneous
  Country: US (occurrence: US)
  Receive Date: 20190424
  Receipt Date: 20190614
  Transmission Date: 20190711
  Serious: No
  Sender: FDA-Public Use
  Company Number: US-PFIZER INC-2019166901

PATIENT
  Age: 59 Year
  Sex: Male
  Weight: 72.56 kg

DRUGS (1)
  1. ALPRAZOLAM. [Suspect]
     Active Substance: ALPRAZOLAM
     Indication: DEPRESSION
     Dosage: 3 MG, 3X/DAY (ONE AND A HALF TABLET THREE TIMES A DAY BY MOUTH)
     Route: 048

REACTIONS (6)
  - Depressed mood [Unknown]
  - Loss of personal independence in daily activities [Unknown]
  - Poor quality product administered [Unknown]
  - Pain [Unknown]
  - Product dispensing error [Unknown]
  - Intentional product misuse [Unknown]

NARRATIVE: CASE EVENT DATE: 201904
